FAERS Safety Report 16869898 (Version 1)
Quarter: 2019Q3

REPORT INFORMATION
  Report Type: Report from Study
  Country: PL (occurrence: PL)
  Receive Date: 20190930
  Receipt Date: 20190930
  Transmission Date: 20191005
  Serious: Yes (Life-Threatening, Hospitalization, Other)
  Sender: FDA-Public Use
  Company Number: PHHO2017PL002216

PATIENT
  Age: 74 Year
  Sex: Male
  Weight: 91.9 kg

DRUGS (9)
  1. ACARD [Suspect]
     Active Substance: ASPIRIN
     Indication: ATRIAL FIBRILLATION
  2. LIPANTHYL [Concomitant]
     Active Substance: FENOFIBRATE
     Indication: DYSLIPIDAEMIA
     Dosage: 160 MG, QD
     Route: 065
     Dates: start: 20160908, end: 20170405
  3. VALSARTAN. [Suspect]
     Active Substance: VALSARTAN
     Indication: CARDIAC FAILURE CHRONIC
     Dosage: 160 MG, BID
     Route: 048
     Dates: start: 20160927
  4. PLACEBO [Suspect]
     Active Substance: UNSPECIFIED INGREDIENT
     Indication: CARDIAC FAILURE CHRONIC
     Dosage: UNK
     Route: 048
     Dates: start: 20160927
  5. AREPLEX [Suspect]
     Active Substance: CLOPIDOGREL BISULFATE
     Indication: CORONARY ANGIOPLASTY
     Dosage: 75 MG, QD
     Route: 065
     Dates: start: 20151222, end: 20161229
  6. NOLPAZA [Concomitant]
     Active Substance: PANTOPRAZOLE SODIUM
     Indication: HAEMORRHAGE PROPHYLAXIS
     Dosage: 20 MG, QD
     Route: 065
     Dates: start: 20150723
  7. AREPLEX [Suspect]
     Active Substance: CLOPIDOGREL BISULFATE
     Indication: ATRIAL FIBRILLATION
  8. ACARD [Suspect]
     Active Substance: ASPIRIN
     Indication: CORONARY ANGIOPLASTY
     Dosage: 75 MG, QD
     Route: 065
     Dates: start: 20160801
  9. TORSEMED [Concomitant]
     Indication: CARDIAC FAILURE
     Dosage: 10 MG, BID
     Route: 065
     Dates: start: 20161229, end: 20171227

REACTIONS (6)
  - Cardiac failure [Recovered/Resolved]
  - Haemoptysis [Recovered/Resolved]
  - Angina pectoris [Not Recovered/Not Resolved]
  - Chronic kidney disease [Recovered/Resolved]
  - Cardiac failure [Not Recovered/Not Resolved]
  - Cardiac failure [Recovered/Resolved]

NARRATIVE: CASE EVENT DATE: 20161229
